FAERS Safety Report 22313918 (Version 1)
Quarter: 2023Q2

REPORT INFORMATION
  Report Type: Spontaneous
  Country: US (occurrence: None)
  Receive Date: 20230511
  Receipt Date: 20230511
  Transmission Date: 20230721
  Serious: No
  Sender: FDA-Public Use
  Company Number: None

PATIENT
  Age: 72 Year
  Sex: Male
  Weight: 70.81 kg

DRUGS (16)
  1. ABIRATERONE [Suspect]
     Active Substance: ABIRATERONE
     Indication: Prostate cancer
     Dosage: FREQUENCY : DAILY;?
     Route: 048
     Dates: start: 202303, end: 20230511
  2. ACETAMINOPHEN-CODEINE #4 [Concomitant]
  3. AMLODIPINE [Concomitant]
     Active Substance: AMLODIPINE BESYLATE
  4. ASCORBIC ACID [Concomitant]
  5. ASPIRIN [Concomitant]
  6. BENTYL [Concomitant]
     Active Substance: DICYCLOMINE HYDROCHLORIDE
  7. CASODEX [Concomitant]
  8. CIALIS [Concomitant]
     Active Substance: TADALAFIL
  9. GABAPENTIN [Concomitant]
     Active Substance: GABAPENTIN
  10. LISINOPRIL [Concomitant]
     Active Substance: LISINOPRIL
  11. NIFEDIPINE [Concomitant]
     Active Substance: NIFEDIPINE
  12. NORCO [Concomitant]
  13. POTASSIUM CHLORIDE [Concomitant]
     Active Substance: POTASSIUM CHLORIDE
  14. PREDNISONE [Concomitant]
     Active Substance: PREDNISONE
  15. VITAMIN D3 [Concomitant]
  16. ZOFRAN [Concomitant]
     Active Substance: ONDANSETRON HYDROCHLORIDE

REACTIONS (2)
  - Prostate cancer [None]
  - Malignant neoplasm progression [None]
